FAERS Safety Report 25068010 (Version 1)
Quarter: 2025Q1

REPORT INFORMATION
  Report Type: Spontaneous
  Country: FR (occurrence: FR)
  Receive Date: 20250312
  Receipt Date: 20250312
  Transmission Date: 20250409
  Serious: Yes (Hospitalization, Other)
  Sender: MYLAN
  Company Number: None

PATIENT
  Age: 31 Year
  Sex: Male

DRUGS (32)
  1. PREGABALIN [Suspect]
     Active Substance: PREGABALIN
     Indication: Product used for unknown indication
  2. PREGABALIN [Suspect]
     Active Substance: PREGABALIN
     Route: 065
  3. PREGABALIN [Suspect]
     Active Substance: PREGABALIN
     Route: 065
  4. PREGABALIN [Suspect]
     Active Substance: PREGABALIN
  5. COCAINE [Suspect]
     Active Substance: COCAINE
     Indication: Product used for unknown indication
  6. COCAINE [Suspect]
     Active Substance: COCAINE
     Route: 065
  7. COCAINE [Suspect]
     Active Substance: COCAINE
     Route: 065
  8. COCAINE [Suspect]
     Active Substance: COCAINE
  9. CANNABIS SATIVA SUBSP. INDICA TOP [Suspect]
     Active Substance: CANNABIS SATIVA SUBSP. INDICA TOP
     Indication: Product used for unknown indication
  10. CANNABIS SATIVA SUBSP. INDICA TOP [Suspect]
     Active Substance: CANNABIS SATIVA SUBSP. INDICA TOP
     Route: 065
  11. CANNABIS SATIVA SUBSP. INDICA TOP [Suspect]
     Active Substance: CANNABIS SATIVA SUBSP. INDICA TOP
     Route: 065
  12. CANNABIS SATIVA SUBSP. INDICA TOP [Suspect]
     Active Substance: CANNABIS SATIVA SUBSP. INDICA TOP
  13. CLONAZEPAM [Concomitant]
     Active Substance: CLONAZEPAM
  14. CLONAZEPAM [Concomitant]
     Active Substance: CLONAZEPAM
     Route: 065
  15. CLONAZEPAM [Concomitant]
     Active Substance: CLONAZEPAM
     Route: 065
  16. CLONAZEPAM [Concomitant]
     Active Substance: CLONAZEPAM
  17. DIAZEPAM [Concomitant]
     Active Substance: DIAZEPAM
  18. DIAZEPAM [Concomitant]
     Active Substance: DIAZEPAM
     Route: 065
  19. DIAZEPAM [Concomitant]
     Active Substance: DIAZEPAM
     Route: 065
  20. DIAZEPAM [Concomitant]
     Active Substance: DIAZEPAM
  21. MIDAZOLAM [Concomitant]
     Active Substance: MIDAZOLAM
  22. MIDAZOLAM [Concomitant]
     Active Substance: MIDAZOLAM
     Route: 065
  23. MIDAZOLAM [Concomitant]
     Active Substance: MIDAZOLAM
     Route: 065
  24. MIDAZOLAM [Concomitant]
     Active Substance: MIDAZOLAM
  25. TRAMADOL HYDROCHLORIDE [Concomitant]
     Active Substance: TRAMADOL HYDROCHLORIDE
  26. TRAMADOL HYDROCHLORIDE [Concomitant]
     Active Substance: TRAMADOL HYDROCHLORIDE
     Route: 065
  27. TRAMADOL HYDROCHLORIDE [Concomitant]
     Active Substance: TRAMADOL HYDROCHLORIDE
     Route: 065
  28. TRAMADOL HYDROCHLORIDE [Concomitant]
     Active Substance: TRAMADOL HYDROCHLORIDE
  29. ETOMIDATE [Concomitant]
     Active Substance: ETOMIDATE
  30. ETOMIDATE [Concomitant]
     Active Substance: ETOMIDATE
     Route: 065
  31. ETOMIDATE [Concomitant]
     Active Substance: ETOMIDATE
     Route: 065
  32. ETOMIDATE [Concomitant]
     Active Substance: ETOMIDATE

REACTIONS (4)
  - Seizure [Recovered/Resolved]
  - Drug abuse [Unknown]
  - Coma [Recovered/Resolved]
  - Head injury [Recovered/Resolved]

NARRATIVE: CASE EVENT DATE: 20241201
